FAERS Safety Report 7809738-7 (Version None)
Quarter: 2011Q4

REPORT INFORMATION
  Report Type: 
  Country: None (occurrence: None)
  Receive Date: 20111007
  Receipt Date: 20110929
  Transmission Date: 20120403
  Serious: Yes (Other)
  Sender: FDA-Public Use
  Company Number: TPA2011A06173

PATIENT
  Age: 84 Year
  Sex: Female
  Weight: 76.6579 kg

DRUGS (1)
  1. ACTOS [Suspect]
     Indication: TYPE 2 DIABETES MELLITUS
     Dosage: 30-45 MG 1 IN 1 D, PER ORAL
     Route: 048
     Dates: start: 20001001, end: 20071001

REACTIONS (1)
  - BLADDER ADENOCARCINOMA STAGE UNSPECIFIED [None]
